FAERS Safety Report 26090941 (Version 1)
Quarter: 2025Q4

REPORT INFORMATION
  Report Type: Spontaneous
  Country: US (occurrence: US)
  Receive Date: 20251126
  Receipt Date: 20251126
  Transmission Date: 20260118
  Serious: No
  Sender: EMD SERONO INC
  Company Number: US-Merck Healthcare KGaA-2025059259

PATIENT
  Age: 65 Year
  Sex: Female
  Weight: 75 kg

DRUGS (8)
  1. MAVENCLAD [Suspect]
     Active Substance: CLADRIBINE
     Indication: Relapsing-remitting multiple sclerosis
     Dosage: CYCLE ONE THERAPY: 2 TABLETS ON DAYS 1 TO 2 AND 1 TABLET ON DAYS 3 TO 5
     Dates: start: 20251029
  2. ALBUTEROL [Concomitant]
     Active Substance: ALBUTEROL
     Indication: Product used for unknown indication
  3. AMARYL [Concomitant]
     Active Substance: GLIMEPIRIDE
     Indication: Diabetes mellitus
  4. COSENTYX [Concomitant]
     Active Substance: SECUKINUMAB
     Indication: Arthritis
  5. CYMBALTA [Concomitant]
     Active Substance: DULOXETINE HYDROCHLORIDE
     Indication: Fibromyalgia
  6. INSULIN HUMAN [Concomitant]
     Active Substance: INSULIN HUMAN
     Indication: Diabetes mellitus
  7. OMEPRAZOLE [Concomitant]
     Active Substance: OMEPRAZOLE
     Indication: Product used for unknown indication
  8. PREDNISONE [Concomitant]
     Active Substance: PREDNISONE
     Indication: Product used for unknown indication

REACTIONS (4)
  - Alopecia [Unknown]
  - Chills [Unknown]
  - Myalgia [Recovering/Resolving]
  - Muscular weakness [Not Recovered/Not Resolved]
